FAERS Safety Report 4807070-7 (Version None)
Quarter: 2005Q4

REPORT INFORMATION
  Report Type: 
  Country: None (occurrence: None)
  Receive Date: 20051024
  Receipt Date: 20051012
  Transmission Date: 20060501
  Serious: Yes (Other)
  Sender: FDA-Public Use
  Company Number: JP-BRISTOL-MYERS SQUIBB COMPANY-13144514

PATIENT
  Age: 54 Year
  Sex: Female

DRUGS (1)
  1. KENACORT [Suspect]
     Indication: MACULAR OEDEMA
     Route: 031
     Dates: start: 20041101, end: 20041101

REACTIONS (1)
  - CYTOMEGALOVIRUS CHORIORETINITIS [None]
